FAERS Safety Report 11182981 (Version 1)
Quarter: 2015Q2

REPORT INFORMATION
  Report Type: Other
  Country: GB (occurrence: GB)
  Receive Date: 20150611
  Receipt Date: 20150611
  Transmission Date: 20150821
  Serious: Yes (Other)
  Sender: FDA-Public Use
  Company Number: GB-MYLANLABS-2015M1017862

PATIENT

DRUGS (16)
  1. MOVICOL [Concomitant]
     Active Substance: POLYETHYLENE GLYCOL 3350\POTASSIUM CHLORIDE\SODIUM BICARBONATE\SODIUM CHLORIDE
     Dosage: 1 OR 2 SACHETS A DAY
     Dates: start: 20150224
  2. PARACETAMOL [Concomitant]
     Active Substance: ACETAMINOPHEN
     Dosage: 15 ML, AS NECESSAR (MAX FOUR TIMES DAILY)
     Route: 048
     Dates: start: 20150220
  3. PREGABALIN. [Concomitant]
     Active Substance: PREGABALIN
     Dosage: 50 MG, BID
     Dates: start: 20141208
  4. HYDROCORTISONE. [Concomitant]
     Active Substance: HYDROCORTISONE
     Dosage: 1 DF, UNK (APPLY TWICE DAILY AS NEEDED)
     Dates: start: 20150224
  5. WATER FOR INJECTIONS [Concomitant]
     Active Substance: WATER
     Dosage: 5 ML, QD
     Dates: start: 20150410
  6. HYOSCINE [Concomitant]
     Active Substance: SCOPOLAMINE
     Dosage: 0.5 DF, EVERY 48 HOURS
     Route: 062
     Dates: start: 20150107
  7. MIDAZOLAM [Concomitant]
     Active Substance: MIDAZOLAM\MIDAZOLAM HYDROCHLORIDE
     Indication: SEIZURE
     Dosage: 2.5 MG, AS NECESSARY (UP TO 4 TIMES A DAY)
     Route: 002
     Dates: start: 20150413
  8. VITAMINS NOS [Concomitant]
     Active Substance: VITAMINS
     Dosage: 2 DF, QD
     Dates: start: 20150119
  9. FENTANYL. [Suspect]
     Active Substance: FENTANYL
     Indication: PAIN
     Dosage: 37.5 MCG/H
     Route: 062
     Dates: start: 20080911, end: 20150410
  10. ORAMORPH SR SUSTAINED RELEASE [Concomitant]
     Active Substance: MORPHINE SULFATE
     Dosage: 10 ML, AS NECESSARY (UP TO 4 TIMES DAILY)
     Route: 048
     Dates: start: 20150427
  11. LANSOPRAZOLE. [Concomitant]
     Active Substance: LANSOPRAZOLE
     Dosage: 30 MG, QD
     Dates: start: 20150417
  12. DIAZEPAM. [Concomitant]
     Active Substance: DIAZEPAM
     Dosage: 6 MG, QD (AT NIGHT)
     Route: 048
     Dates: start: 20150427
  13. DICLOFENAC [Concomitant]
     Active Substance: DICLOFENAC
     Dosage: 50 MG, AS NECESSARY (TAKE 1 THREE TIMES A DAY AS NEEDED)
     Dates: start: 20150417
  14. EPILIM [Concomitant]
     Active Substance: VALPROATE SODIUM
     Dates: start: 20150413
  15. BACLOFEN. [Concomitant]
     Active Substance: BACLOFEN
     Dosage: 7.5 ML, QID
     Route: 048
     Dates: start: 20150323
  16. CITALOPRAM [Concomitant]
     Active Substance: CITALOPRAM HYDROBROMIDE
     Dosage: 8 DF, QD
     Route: 048
     Dates: start: 20150427

REACTIONS (3)
  - Dyspnoea [Recovered/Resolved]
  - Muscle rigidity [Recovered/Resolved]
  - Chest discomfort [Recovered/Resolved]
